FAERS Safety Report 15438553 (Version 1)
Quarter: 2018Q3

REPORT INFORMATION
  Report Type: Spontaneous
  Country: US (occurrence: US)
  Receive Date: 20180928
  Receipt Date: 20180928
  Transmission Date: 20181010
  Serious: Yes (Death)
  Sender: FDA-Public Use
  Company Number: US-ROCHE-2191749

PATIENT
  Age: 76 Year
  Sex: Male

DRUGS (3)
  1. IPRATROPIUM [Concomitant]
     Active Substance: IPRATROPIUM
  2. ALLOPURINOL. [Concomitant]
     Active Substance: ALLOPURINOL
     Route: 065
  3. ESBRIET [Suspect]
     Active Substance: PIRFENIDONE
     Indication: IDIOPATHIC PULMONARY FIBROSIS
     Route: 048
     Dates: start: 20170202

REACTIONS (1)
  - Death [Fatal]

NARRATIVE: CASE EVENT DATE: 20180902
